FAERS Safety Report 8628364 (Version 3)
Quarter: 2012Q4

REPORT INFORMATION
  Report Type: 
  Country: US (occurrence: US)
  Receive Date: 20120621
  Receipt Date: 20121001
  Transmission Date: 20130627
  Serious: No
  Sender: FDA-Public Use
  Company Number: PHEH2011US02886

PATIENT
  Age: 54 Year
  Sex: Female

DRUGS (12)
  1. TASIGNA [Suspect]
     Indication: LYMPHOCYTIC LEUKAEMIA
     Dosage: 600 mg,
     Route: 048
     Dates: start: 20100514
  2. CYMBALTA [Concomitant]
  3. SYNTHROID [Concomitant]
  4. HYDROCHLOROTHIAZIDE W/TRIAMTERENE [Concomitant]
  5. LUNESTA [Concomitant]
  6. ASPIRIN [Concomitant]
  7. ATIVAN [Concomitant]
  8. LEVOTHYROXINE SODIUM [Concomitant]
  9. NEXIUM [Concomitant]
  10. METFORMIN HYDROCHLORIDE [Concomitant]
  11. ESTRADIOL [Concomitant]
  12. LEXAPRO [Concomitant]

REACTIONS (7)
  - Chest pain [Recovered/Resolved]
  - Pharyngitis [Not Recovered/Not Resolved]
  - Dysphagia [Not Recovered/Not Resolved]
  - Dry throat [Not Recovered/Not Resolved]
  - Mastication disorder [Not Recovered/Not Resolved]
  - Abdominal pain [Not Recovered/Not Resolved]
  - Incorrect drug administration duration [Unknown]
